FAERS Safety Report 7587205-6 (Version None)
Quarter: 2011Q3

REPORT INFORMATION
  Report Type: 
  Country: None (occurrence: None)
  Receive Date: 20110701
  Receipt Date: 20110621
  Transmission Date: 20111222
  Serious: Yes (Hospitalization)
  Sender: FDA-Public Use
  Company Number: US-BAYER-2011-033459

PATIENT
  Age: 82 Year
  Sex: Male
  Weight: 91.61 kg

DRUGS (8)
  1. EVEROLIMUS [Suspect]
     Indication: RENAL CANCER
     Dosage: 35 MG, OW
     Dates: start: 20110218, end: 20110408
  2. ASPIRIN [Concomitant]
     Indication: CORONARY ARTERY DISEASE
     Dosage: 81 MG, QD
     Dates: start: 20070101
  3. METOPROLOL TARTRATE [Concomitant]
     Indication: CORONARY ARTERY DISEASE
     Dosage: 25 MG, BID
     Route: 048
     Dates: start: 20101123
  4. LASIX [Concomitant]
     Indication: OEDEMA PERIPHERAL
     Dosage: 40 MG, QD
     Route: 048
     Dates: start: 20110311, end: 20110311
  5. SORAFENIB (RAF KINASE INHIBITOR) [Suspect]
     Indication: RENAL CANCER
     Dosage: 400 MG, QD (C2D29)
     Route: 048
     Dates: start: 20110218, end: 20110413
  6. SIMVASTATIN [Concomitant]
     Indication: BLOOD CHOLESTEROL INCREASED
     Dosage: 80 MG, QD
     Dates: start: 20070101
  7. HYDRALAZINE HCL [Concomitant]
     Indication: HYPERTENSION
     Dosage: 50 MG, QD
     Route: 048
     Dates: start: 20100716
  8. NIFEDIAC CC [Concomitant]
     Indication: HYPERTENSION
     Dosage: 30 MG, QD
     Route: 048
     Dates: start: 20100716

REACTIONS (2)
  - NEPHROTIC SYNDROME [None]
  - GENERALISED OEDEMA [None]
